FAERS Safety Report 22706078 (Version 9)
Quarter: 2024Q2

REPORT INFORMATION
  Report Type: Report from Study
  Country: AT (occurrence: AT)
  Receive Date: 20230714
  Receipt Date: 20240505
  Transmission Date: 20240716
  Serious: No
  Sender: FDA-Public Use
  Company Number: AT-PFM-2023-03876

PATIENT
  Sex: Male
  Weight: 68 kg

DRUGS (18)
  1. BRAFTOVI [Suspect]
     Active Substance: ENCORAFENIB
     Indication: Colorectal cancer
     Dosage: 300 MG PER DAY
     Route: 048
     Dates: start: 20230607
  2. BRAFTOVI [Suspect]
     Active Substance: ENCORAFENIB
     Dosage: 225 MG PER DAY
     Route: 048
     Dates: end: 20240311
  3. CETUXIMAB [Suspect]
     Active Substance: CETUXIMAB
     Indication: Colorectal cancer
     Dosage: 400 MG/M2 (LIQUID DILUTION)
     Route: 042
     Dates: start: 20230531
  4. CETUXIMAB [Suspect]
     Active Substance: CETUXIMAB
     Dosage: 250 MG/M2, WEEKLY (LIQUID DILUTION)
     Route: 042
     Dates: start: 20230607
  5. CETUXIMAB [Suspect]
     Active Substance: CETUXIMAB
     Dosage: 250 MG/M2, WEEKLY (LIQUID DILUTION)
     Route: 065
     Dates: start: 20230614
  6. CETUXIMAB [Suspect]
     Active Substance: CETUXIMAB
     Dosage: 197 MG/M2, WEEKLY (LIQUID DILUTION)
     Route: 065
  7. CETUXIMAB [Suspect]
     Active Substance: CETUXIMAB
     Dosage: 250 MG/M2, WEEKLY (LIQUID DILUTION)
     Route: 065
  8. CETUXIMAB [Suspect]
     Active Substance: CETUXIMAB
     Dosage: 196 MG/M2, WEEKLY (LIQUID DILUTION)
     Route: 065
  9. CETUXIMAB [Suspect]
     Active Substance: CETUXIMAB
     Dosage: 200 MG/M2, WEEKLY (LIQUID DILUTION)
     Route: 065
     Dates: end: 20240229
  10. EDOXABAN TOSYLATE [Concomitant]
     Active Substance: EDOXABAN TOSYLATE
     Indication: Prophylaxis
     Dosage: 60 MG, DAILY
     Route: 048
     Dates: start: 202202
  11. NOVALGIN (METAMIZOLE SODIUM) [Concomitant]
     Active Substance: METAMIZOLE SODIUM
     Indication: Prophylaxis
     Dosage: 500 MG, PRN (AS NEEDED)
     Route: 048
     Dates: start: 202202
  12. LACTULOSE [Concomitant]
     Active Substance: LACTULOSE
     Indication: Prophylaxis
     Dosage: 15 ML, PRN (AS NEEDED)
     Route: 048
     Dates: start: 20220623
  13. SCHERIPROCT [CINCHOCAINE HYDROCHLORIDE;PREDNISOLONE CAPROATE] [Concomitant]
     Indication: Anal fissure
     Dosage: 1 UNK, PRN (AS NEEDED)
     Route: 054
     Dates: start: 20220623
  14. METOCLOPRAMIDE HYDROCHLORIDE [Concomitant]
     Active Substance: METOCLOPRAMIDE HYDROCHLORIDE
     Indication: Prophylaxis
     Dosage: 10.54 MG, PRN (AS NEEDED)
     Route: 048
     Dates: start: 20220623
  15. PANTOPRAZOLE SODIUM [Concomitant]
     Active Substance: PANTOPRAZOLE SODIUM
     Indication: Prophylaxis
     Dosage: 40 MG, PRN (AS NEEDED)
     Route: 048
     Dates: start: 20230531
  16. MINOSTAD [Concomitant]
     Indication: Prophylaxis
     Dosage: 50 MG, DAILY
     Route: 048
     Dates: start: 20230531
  17. DIPRODERMA CR [Concomitant]
     Indication: Prophylaxis
     Dosage: 1 ML, PRN (AS NEEDED)
     Route: 061
     Dates: start: 20230531
  18. DILTIAZEM HYDROCHLORIDE [Concomitant]
     Active Substance: DILTIAZEM HYDROCHLORIDE
     Indication: Anal fissure
     Dosage: 1 ML DAILY
     Route: 054
     Dates: start: 20230726

REACTIONS (10)
  - Polyneuropathy [Recovered/Resolved]
  - Gastrointestinal disorder [Recovered/Resolved]
  - Palmar-plantar erythrodysaesthesia syndrome [Recovered/Resolved]
  - Rash [Recovered/Resolved]
  - Gastrointestinal disorder [Recovered/Resolved]
  - Testicular swelling [Recovered/Resolved]
  - Decreased appetite [Recovered/Resolved]
  - Rectal haemorrhage [Recovered/Resolved]
  - Oedema peripheral [Recovered/Resolved]
  - Oedema peripheral [Recovered/Resolved]

NARRATIVE: CASE EVENT DATE: 20230607
